FAERS Safety Report 14364562 (Version 5)
Quarter: 2020Q2

REPORT INFORMATION
  Report Type: Report from Study
  Country: None (occurrence: CA)
  Receive Date: 20180108
  Receipt Date: 20200423
  Transmission Date: 20200713
  Serious: Yes (Hospitalization, Other)
  Sender: FDA-Public Use
  Company Number: CA-ABBVIE-18P-028-2212439-00

PATIENT
  Age: 14 Year
  Sex: Male
  Weight: 65 kg

DRUGS (10)
  1. REMICADE [Concomitant]
     Active Substance: INFLIXIMAB
     Route: 041
     Dates: start: 20180820, end: 20181126
  2. REMICADE [Concomitant]
     Active Substance: INFLIXIMAB
     Route: 041
     Dates: start: 20181126, end: 20190418
  3. HUMIRA [Suspect]
     Active Substance: ADALIMUMAB
     Route: 058
     Dates: start: 20171201, end: 20180414
  4. REMICADE [Concomitant]
     Active Substance: INFLIXIMAB
     Route: 042
     Dates: start: 20200210
  5. METHOTREXATE. [Concomitant]
     Active Substance: METHOTREXATE
     Indication: CROHN^S DISEASE
     Route: 048
     Dates: start: 20200113
  6. FOLIC ACID. [Concomitant]
     Active Substance: FOLIC ACID
     Indication: CROHN^S DISEASE
     Dosage: DAILY, EXCEPT DAY OF METHOTREXATE
     Route: 048
     Dates: start: 20200113
  7. HUMIRA [Suspect]
     Active Substance: ADALIMUMAB
     Indication: CROHN^S DISEASE
     Route: 058
     Dates: start: 20160507, end: 20171201
  8. VITAMIN D [Concomitant]
     Active Substance: VITAMIN D NOS
     Indication: NUTRITIONAL SUPPLEMENTATION
     Route: 048
     Dates: start: 20160201
  9. REMICADE [Concomitant]
     Active Substance: INFLIXIMAB
     Indication: CROHN^S DISEASE
     Route: 041
     Dates: start: 20180423, end: 20180815
  10. REMICADE [Concomitant]
     Active Substance: INFLIXIMAB
     Route: 041
     Dates: start: 20190418, end: 20200109

REACTIONS (1)
  - Anal abscess [Not Recovered/Not Resolved]

NARRATIVE: CASE EVENT DATE: 20171201
